FAERS Safety Report 5005217-3 (Version None)
Quarter: 2006Q2

REPORT INFORMATION
  Report Type: 
  Country: None (occurrence: None)
  Receive Date: 20060515
  Receipt Date: 20060502
  Transmission Date: 20061013
  Serious: Yes (Hospitalization, Other)
  Sender: FDA-Public Use
  Company Number: 2006058862

PATIENT
  Age: 64 Year
  Sex: Male
  Weight: 52.1637 kg

DRUGS (11)
  1. DILANTIN [Suspect]
     Indication: CONVULSION
     Dosage: ORAL
     Route: 048
  2. PHENYTOIN [Suspect]
     Indication: CONVULSION
  3. ALL OTHER THERAPEUTIC PRODUCTS (ALL OTHER THERAPEUTIC PRODUCTS) [Suspect]
     Indication: CONVULSION
     Dates: start: 20060101
  4. KEPPRA [Concomitant]
  5. COMBIVENT [Concomitant]
  6. LAMICTAL [Concomitant]
  7. CALCIUM (CALCIUM) [Concomitant]
  8. VITAMIN D [Concomitant]
  9. PROTONIX [Concomitant]
  10. ANTACIDS (ANTACIDS) [Concomitant]
  11. DOCUSATE (DOCUSATE) [Concomitant]

REACTIONS (4)
  - ANTICONVULSANT DRUG LEVEL DECREASED [None]
  - ANTICONVULSANT DRUG LEVEL INCREASED [None]
  - CONVULSION [None]
  - MEDICAL DEVICE COMPLICATION [None]
